FAERS Safety Report 7508379-9 (Version None)
Quarter: 2011Q2

REPORT INFORMATION
  Report Type: 
  Country: None (occurrence: None)
  Receive Date: 20110527
  Receipt Date: 20110520
  Transmission Date: 20111010
  Serious: Yes (Other)
  Sender: FDA-Public Use
  Company Number: US-PFIZER INC-2011109993

PATIENT

DRUGS (1)
  1. VANCOMYCIN HCL [Suspect]
     Dosage: UNK
     Dates: start: 20101101, end: 20101101

REACTIONS (2)
  - TINNITUS [None]
  - DEAFNESS [None]
